FAERS Safety Report 15057785 (Version 1)
Quarter: 2018Q3

REPORT INFORMATION
  Report Type: Spontaneous
  Country: US (occurrence: US)
  Receive Date: 20180625
  Receipt Date: 20180625
  Transmission Date: 20181010
  Serious: Yes (Hospitalization, Other)
  Sender: FDA-Public Use
  Company Number: US-JNJFOC-20180620217

PATIENT
  Age: 50 Year
  Sex: Male
  Weight: 81.65 kg

DRUGS (3)
  1. DICLOFENAC [Concomitant]
     Active Substance: DICLOFENAC
     Indication: ARTHRITIS
     Route: 065
  2. TRAMADOL. [Concomitant]
     Active Substance: TRAMADOL
     Indication: PAIN MANAGEMENT
     Route: 065
  3. NEUTROGENA BEACH DEFENSE WATER PLUS SUN PROTECTION SUNSCREEN BROAD SPECTRUM SPF70 [Suspect]
     Active Substance: AVOBENZONE\HOMOSALATE\OCTISALATE\OCTOCRYLENE\OXYBENZONE
     Indication: PROPHYLAXIS AGAINST SOLAR RADIATION
     Dosage: EVERY 80 MINUTES WITH A COUPLE OF SPRAYS, ONE TIME
     Route: 061
     Dates: start: 20180608, end: 20180608

REACTIONS (5)
  - Burns third degree [Unknown]
  - Rash macular [None]
  - Application site rash [Unknown]
  - Chemical burn [None]
  - Application site pain [None]

NARRATIVE: CASE EVENT DATE: 20180608
